FAERS Safety Report 24942980 (Version 1)
Quarter: 2025Q1

REPORT INFORMATION
  Report Type: Other
  Country: FR (occurrence: FR)
  Receive Date: 20250207
  Receipt Date: 20250207
  Transmission Date: 20250408
  Serious: Yes (Hospitalization)
  Sender: B BRAUN
  Company Number: FR-B.Braun Medical Inc.-2170669

PATIENT
  Age: 41 Year
  Sex: Female

DRUGS (4)
  1. METRONIDAZOLE [Suspect]
     Active Substance: METRONIDAZOLE
     Indication: Odynophagia
  2. TRAMADOL [Suspect]
     Active Substance: TRAMADOL
  3. cannabis use [Concomitant]
  4. Vitamin K antagonist [Concomitant]

REACTIONS (3)
  - Peripheral sensorimotor neuropathy [Recovered/Resolved]
  - Off label use [Recovered/Resolved]
  - Porphyria acute [Recovered/Resolved]
